FAERS Safety Report 4366216-8 (Version None)
Quarter: 2004Q2

REPORT INFORMATION
  Report Type: 
  Country: None (occurrence: None)
  Receive Date: 20040527
  Receipt Date: 20040315
  Transmission Date: 20050107
  Serious: No
  Sender: FDA-Public Use
  Company Number: US-BRISTOL-MYERS SQUIBB COMPANY-12533162

PATIENT
  Age: 40 Year
  Sex: Female

DRUGS (18)
  1. DEFINITY [Suspect]
     Indication: CARDIAC STRESS TEST
     Dates: start: 20040311, end: 20040311
  2. LISINOPRIL [Concomitant]
  3. LEVOXYL [Concomitant]
  4. DETROL LA [Concomitant]
  5. TRAZODONE HCL [Concomitant]
  6. ZOLOFT [Concomitant]
  7. PRILOSEC [Concomitant]
  8. VIOXX [Concomitant]
  9. GLUCOPHAGE [Concomitant]
  10. BACLOFEN [Concomitant]
  11. PROPRANOLOL [Concomitant]
  12. AMBIEN [Concomitant]
  13. LIPITOR [Concomitant]
  14. METHYLPHENIDATE HCL [Concomitant]
  15. METHADONE HCL [Concomitant]
  16. NORCO [Concomitant]
     Dosage: DOSE: 10MG/325MG
  17. HYDROCORTISONE CREAM [Concomitant]
  18. IODOQUINOL [Concomitant]

REACTIONS (2)
  - ERYTHEMA [None]
  - THROAT TIGHTNESS [None]
